FAERS Safety Report 5104537-1 (Version None)
Quarter: 2006Q3

REPORT INFORMATION
  Report Type: 
  Country: None (occurrence: None)
  Receive Date: 20060908
  Receipt Date: 20060908
  Transmission Date: 20061208
  Serious: Yes (Life-Threatening, Hospitalization, Other)
  Sender: FDA-Public Use
  Company Number: None

PATIENT
  Age: 45 Year
  Sex: Female
  Weight: 81.6475 kg

DRUGS (1)
  1. CYMBALTA [Suspect]
     Indication: DEPRESSION
     Dosage: 1 X A DAY
     Dates: start: 20060625, end: 20060801

REACTIONS (9)
  - ADVERSE DRUG REACTION [None]
  - CONSTIPATION [None]
  - CONVULSION [None]
  - CRYING [None]
  - DISTURBANCE IN ATTENTION [None]
  - DRUG WITHDRAWAL SYNDROME [None]
  - LOSS OF CONTROL OF LEGS [None]
  - PAIN [None]
  - PARANOIA [None]
